FAERS Safety Report 11912098 (Version 1)
Quarter: 2016Q1

REPORT INFORMATION
  Report Type: Spontaneous
  Country: US (occurrence: US)
  Receive Date: 20160112
  Receipt Date: 20160112
  Transmission Date: 20160526
  Serious: Yes (Hospitalization)
  Sender: FDA-Public Use
  Company Number: US-MYLANLABS-2016M1001425

PATIENT

DRUGS (1)
  1. SELEGILINE [Suspect]
     Active Substance: SELEGILINE
     Indication: MAJOR DEPRESSION
     Dosage: 10MG DAILY
     Route: 065

REACTIONS (3)
  - Depression [Recovering/Resolving]
  - Drug withdrawal syndrome [Recovering/Resolving]
  - Panic attack [Recovering/Resolving]
